FAERS Safety Report 9803472 (Version 3)
Quarter: 2014Q1

REPORT INFORMATION
  Report Type: Spontaneous
  Country: US (occurrence: US)
  Receive Date: 20140108
  Receipt Date: 20140306
  Transmission Date: 20141002
  Serious: No
  Sender: FDA-Public Use
  Company Number: US-PFIZER INC-2014003939

PATIENT
  Age: 27 Year
  Sex: Female
  Weight: 70.3 kg

DRUGS (2)
  1. LYRICA [Suspect]
     Indication: COMPLEX REGIONAL PAIN SYNDROME
     Dosage: 100 MG, 3X/DAY
     Dates: start: 20131114, end: 201401
  2. NORCO [Concomitant]
     Indication: ARTHRALGIA
     Dosage: UNK, 3X/DAY (HYDROCODONE BITARTRATE (5MG)/ACETAMINOPHEN (325MG)

REACTIONS (3)
  - Pain [Unknown]
  - Drug dispensing error [Unknown]
  - Product quality issue [Unknown]
